FAERS Safety Report 8417974-4 (Version None)
Quarter: 2012Q2

REPORT INFORMATION
  Report Type: 
  Country: None (occurrence: None)
  Receive Date: 20120531
  Receipt Date: 20120531
  Transmission Date: 20120825
  Serious: Yes (Other)
  Sender: FDA-Public Use
  Company Number: None

PATIENT
  Age: 64 Year
  Sex: Female
  Weight: 52.1637 kg

DRUGS (2)
  1. RESTASIS [Suspect]
     Indication: DRY EYE
     Dosage: ONE VIAL TWICE DAILY OPHTHALMIC
     Route: 047
     Dates: start: 20120505, end: 20120520
  2. RESTASIS [Suspect]
     Indication: DRY EYE
     Dosage: ONE VIAL TWICE DAILY OPHTHALMIC
     Route: 047
     Dates: start: 20111120, end: 20120310

REACTIONS (1)
  - INSOMNIA [None]
